FAERS Safety Report 6079153-8 (Version None)
Quarter: 2009Q1

REPORT INFORMATION
  Report Type: 
  Country: None (occurrence: None)
  Receive Date: 20090216
  Receipt Date: 20090206
  Transmission Date: 20090719
  Serious: Yes (Other)
  Sender: FDA-Public Use
  Company Number: A0768556A

PATIENT
  Age: 55 Year
  Sex: Male
  Weight: 144.5 kg

DRUGS (5)
  1. AVANDIA [Suspect]
     Dosage: 8MG PER DAY
     Route: 065
     Dates: start: 20050120, end: 20070227
  2. ACTOS [Concomitant]
     Dates: start: 20040121, end: 20070424
  3. HUMALOG [Concomitant]
     Dosage: 135UNIT THREE TIMES PER DAY
     Dates: start: 20031201
  4. AMARYL [Concomitant]
     Dosage: 4MG TWICE PER DAY
     Dates: start: 20040801, end: 20070801
  5. SYMLIN [Concomitant]
     Dosage: 20UNIT THREE TIMES PER DAY
     Dates: start: 20060501

REACTIONS (2)
  - CARDIAC FAILURE CONGESTIVE [None]
  - HYPERLIPIDAEMIA [None]
